FAERS Safety Report 24718421 (Version 1)
Quarter: 2024Q4

REPORT INFORMATION
  Report Type: Spontaneous
  Country: US (occurrence: None)
  Receive Date: 20241210
  Receipt Date: 20241210
  Transmission Date: 20250114
  Serious: Yes (Other)
  Sender: Public
  Company Number: None

PATIENT
  Age: 42 Year
  Sex: Female
  Weight: 70.31 kg

DRUGS (3)
  1. BOTOX [Suspect]
     Active Substance: ONABOTULINUMTOXINA
  2. DYSPORT [Suspect]
     Active Substance: ABOBOTULINUMTOXINA
  3. COSMETICS [Suspect]
     Active Substance: COSMETICS

REACTIONS (7)
  - Dysphagia [None]
  - Dyspnoea [None]
  - Headache [None]
  - Panic attack [None]
  - Influenza like illness [None]
  - Blood pressure fluctuation [None]
  - Palpitations [None]

NARRATIVE: CASE EVENT DATE: 20241205
